FAERS Safety Report 9012074 (Version 3)
Quarter: 2013Q4

REPORT INFORMATION
  Report Type: Spontaneous
  Country: IT (occurrence: IT)
  Receive Date: 20130114
  Receipt Date: 20131206
  Transmission Date: 20140711
  Serious: Yes (Life-Threatening)
  Sender: FDA-Public Use
  Company Number: IT-ROCHE-1178469

PATIENT
  Age: 31 Year
  Sex: Female

DRUGS (2)
  1. RIVOTRIL [Suspect]
     Indication: SELF INJURIOUS BEHAVIOUR
     Route: 048
     Dates: start: 20121216, end: 20121217
  2. SEROPRAM (SPAIN) [Concomitant]

REACTIONS (5)
  - Incorrect dose administered [Unknown]
  - Sopor [Recovering/Resolving]
  - Abdominal pain [Recovering/Resolving]
  - Somnolence [Recovering/Resolving]
  - Drug abuse [Unknown]
